FAERS Safety Report 9290914 (Version 2)
Quarter: 2013Q3

REPORT INFORMATION
  Report Type: Spontaneous
  Country: US (occurrence: US)
  Receive Date: 20130515
  Receipt Date: 20130716
  Transmission Date: 20140515
  Serious: Yes (Other)
  Sender: FDA-Public Use
  Company Number: US-JNJFOC-20130500927

PATIENT
  Age: 86 Year
  Sex: Male
  Weight: 79.83 kg

DRUGS (6)
  1. STELARA [Suspect]
     Indication: PSORIASIS
     Dosage: STARTING THE 2ND 4 WEEKS AFTER
     Route: 058
     Dates: start: 20121025
  2. STELARA [Suspect]
     Indication: PSORIASIS
     Route: 058
     Dates: start: 20120921
  3. AMBIEN [Concomitant]
     Route: 065
  4. CLOBETASOL PROPIONATE [Concomitant]
     Route: 065
  5. DOXEPIN HYDROCHLORIDE [Concomitant]
     Route: 065
  6. TRIAMCINOLONE  ACETONIDE [Concomitant]
     Route: 065

REACTIONS (3)
  - Chronic lymphocytic leukaemia [Not Recovered/Not Resolved]
  - Herpes zoster [Recovered/Resolved]
  - Swollen tongue [Recovered/Resolved]
